FAERS Safety Report 8252203-6 (Version None)
Quarter: 2012Q2

REPORT INFORMATION
  Report Type: 
  Country: None (occurrence: None)
  Receive Date: 20120402
  Receipt Date: 20110902
  Transmission Date: 20120825
  Serious: No
  Sender: FDA-Public Use
  Company Number: US-ABBOTT-11P-163-0851948-00

PATIENT
  Sex: Male

DRUGS (2)
  1. ANDROGEL [Suspect]
     Dosage: 5 PUMPS DAILY
     Route: 062
     Dates: start: 20100701, end: 20110801
  2. ANDROGEL [Suspect]
     Indication: BLOOD TESTOSTERONE DECREASED
     Dosage: 3 PUMPS DAILY
     Route: 062
     Dates: start: 20090401, end: 20100401

REACTIONS (3)
  - ASTHENIA [None]
  - PROSTATIC SPECIFIC ANTIGEN INCREASED [None]
  - FATIGUE [None]
